FAERS Safety Report 4718713-0 (Version None)
Quarter: 2005Q3

REPORT INFORMATION
  Report Type: 
  Country: None (occurrence: None)
  Receive Date: 20050720
  Receipt Date: 20050706
  Transmission Date: 20060218
  Serious: Yes (Other)
  Sender: FDA-Public Use
  Company Number: 200515799US

PATIENT
  Age: 64 Year
  Sex: Male

DRUGS (14)
  1. LANTUS [Suspect]
     Indication: DIABETES MELLITUS NON-INSULIN-DEPENDENT
     Dosage: DOSE UNIT: UNITS
     Route: 051
     Dates: start: 20040101
  2. NOVOLOG [Concomitant]
     Dosage: DOSE: UNKNOWN
  3. LISINOPRIL [Concomitant]
     Dosage: DOSE: UNKNOWN
  4. NEURONTIN [Concomitant]
     Dosage: DOSE: UNKNOWN
  5. POTASSIUM CHLORIDE [Concomitant]
     Dosage: DOSE: UNKNOWN
  6. DETROL [Concomitant]
     Dosage: DOSE: UNKNOWN
  7. DILANTIN [Concomitant]
     Dosage: DOSE: UNKNOWN
  8. PHENOBARBITAL EX [Concomitant]
     Dosage: DOSE: UNKNOWN
  9. PLAVIX [Concomitant]
     Dosage: DOSE: UNKNOWN
  10. SSRI [Concomitant]
     Dosage: DOSE: UNKNOWN
  11. BUMETANIDE [Concomitant]
     Dosage: DOSE: UNK
  12. ZOCOR [Concomitant]
     Dosage: DOSE: UNKNOWN
  13. ACTOS [Concomitant]
     Dosage: DOSE: UNKNOWN
  14. TYLENOL [Concomitant]
     Dosage: DOSE: UNKNOWN

REACTIONS (3)
  - BLOOD GLUCOSE FLUCTUATION [None]
  - EPILEPSY [None]
  - STRESS [None]
